FAERS Safety Report 4984651-1 (Version None)
Quarter: 2006Q2

REPORT INFORMATION
  Report Type: 
  Country: None (occurrence: None)
  Receive Date: 20060427
  Receipt Date: 20051004
  Transmission Date: 20061013
  Serious: Yes (Death, Life-Threatening)
  Sender: FDA-Public Use
  Company Number: US-MERCK-0510USA03568

PATIENT
  Age: 49 Year
  Sex: Male
  Weight: 171 kg

DRUGS (9)
  1. VIOXX [Suspect]
     Indication: BACK PAIN
     Route: 048
     Dates: start: 20010818, end: 20030917
  2. VIOXX [Suspect]
     Route: 048
     Dates: start: 20030901, end: 20030901
  3. VIOXX [Suspect]
     Route: 048
     Dates: start: 20030922, end: 20031009
  4. VIOXX [Suspect]
     Indication: ARTHRALGIA
     Route: 048
     Dates: start: 20010818, end: 20030917
  5. VIOXX [Suspect]
     Route: 048
     Dates: start: 20030901, end: 20030901
  6. VIOXX [Suspect]
     Route: 048
     Dates: start: 20030922, end: 20031009
  7. LOTREL [Concomitant]
     Indication: HYPERTENSION
     Route: 065
  8. LORTAB [Concomitant]
     Route: 065
  9. AUGMENTIN '125' [Concomitant]
     Route: 065
     Dates: start: 20030914

REACTIONS (4)
  - CARDIAC DISORDER [None]
  - CARDIO-RESPIRATORY ARREST [None]
  - HYPERTENSIVE CARDIOMYOPATHY [None]
  - MYOCARDIAL INFARCTION [None]
